FAERS Safety Report 10611168 (Version 4)
Quarter: 2015Q1

REPORT INFORMATION
  Report Type: Spontaneous
  Country: CH (occurrence: None)
  Receive Date: 20141124
  Receipt Date: 20150106
  Transmission Date: 20150720
  Serious: Yes (Hospitalization)
  Sender: FDA-Public Use
  Company Number: 20140742

PATIENT
  Sex: Female
  Weight: 1.05 kg

DRUGS (5)
  1. FERINJECT [Suspect]
     Active Substance: FERRIC CARBOXYMALTOSE
     Indication: IRON DEFICIENCY ANAEMIA
     Route: 064
     Dates: start: 20141012, end: 20141012
  2. ADALAT (NIFEDIPINE) [Concomitant]
  3. AMIPICILLIN [Concomitant]
  4. CELEXANE (ENOXAPARIN SODIUM) [Concomitant]
  5. MAGNESIUM SULFATE. [Concomitant]
     Active Substance: MAGNESIUM SULFATE

REACTIONS (6)
  - Amniotic cavity infection [None]
  - Premature baby [None]
  - Anaemia neonatal [None]
  - Maternal drugs affecting foetus [None]
  - Foetal exposure during pregnancy [None]
  - Caesarean section [None]

NARRATIVE: CASE EVENT DATE: 2014
